FAERS Safety Report 18656993 (Version 2)
Quarter: 2021Q1

REPORT INFORMATION
  Report Type: Report from Study
  Country: DE (occurrence: DE)
  Receive Date: 20201223
  Receipt Date: 20210319
  Transmission Date: 20210419
  Serious: Yes (Hospitalization, Other)
  Sender: FDA-Public Use
  Company Number: NVSC2020DE337712

PATIENT
  Age: 61 Year
  Sex: Male

DRUGS (7)
  1. COSENTYX [Suspect]
     Active Substance: SECUKINUMAB
     Indication: PSORIASIS
     Dosage: 300 MG, UNKNOWN
     Route: 058
     Dates: start: 20180608
  2. RAMIPRIL. [Concomitant]
     Active Substance: RAMIPRIL
     Indication: PRODUCT USED FOR UNKNOWN INDICATION
     Dosage: UNK, QD
     Route: 065
  3. ACETYLSALICYLIC ACID [Concomitant]
     Active Substance: ASPIRIN
     Indication: PRODUCT USED FOR UNKNOWN INDICATION
     Dosage: UNK, QD
     Route: 065
  4. INSPRA [Concomitant]
     Active Substance: EPLERENONE
     Indication: PRODUCT USED FOR UNKNOWN INDICATION
     Dosage: UNK, QD
     Route: 065
  5. NEBIVOLOL. [Concomitant]
     Active Substance: NEBIVOLOL
     Indication: PRODUCT USED FOR UNKNOWN INDICATION
     Dosage: UNK, BID
     Route: 065
  6. ATORVASTATIN [Concomitant]
     Active Substance: ATORVASTATIN
     Indication: PRODUCT USED FOR UNKNOWN INDICATION
     Dosage: UNK, QD
     Route: 065
  7. TORASEMIDE [Concomitant]
     Active Substance: TORSEMIDE
     Indication: PRODUCT USED FOR UNKNOWN INDICATION
     Dosage: UNK, QD
     Route: 065

REACTIONS (24)
  - Fall [Recovered/Resolved]
  - Cardiac failure [Unknown]
  - Extrasystoles [Unknown]
  - Hypertensive heart disease [Unknown]
  - Loss of consciousness [Recovered/Resolved]
  - Pulmonary hypertension [Unknown]
  - Carotid artery disease [Unknown]
  - Skin discolouration [Unknown]
  - Hypertension [Unknown]
  - Tricuspid valve disease [Unknown]
  - Dyspnoea exertional [Unknown]
  - Arteriosclerosis [Unknown]
  - Pulmonary valve incompetence [Unknown]
  - Diastolic dysfunction [Unknown]
  - Supraventricular extrasystoles [Unknown]
  - Syncope [Recovered/Resolved]
  - Cerebral haemorrhage [Unknown]
  - Cerebrovascular accident [Unknown]
  - Ventricular extrasystoles [Unknown]
  - Breath sounds abnormal [Unknown]
  - Tongue dry [Unknown]
  - Mitral valve incompetence [Unknown]
  - Epigastric discomfort [Unknown]
  - Erythema [Unknown]

NARRATIVE: CASE EVENT DATE: 20201008
